FAERS Safety Report 9369425 (Version 1)
Quarter: 2013Q2

REPORT INFORMATION
  Report Type: Spontaneous
  Country: FR (occurrence: FR)
  Receive Date: 20130626
  Receipt Date: 20130626
  Transmission Date: 20140414
  Serious: Yes (Other)
  Sender: FDA-Public Use
  Company Number: FR-009507513-1306FRA007219

PATIENT
  Age: 67 Year
  Sex: Female

DRUGS (2)
  1. FOSAVANCE [Suspect]
     Indication: OSTEOPENIA
     Dosage: UNK
     Route: 048
     Dates: start: 200506
  2. FEMARA [Suspect]
     Indication: BREAST CANCER STAGE I
     Dosage: 1 DF, QD
     Route: 048
     Dates: start: 20061113

REACTIONS (2)
  - Myalgia [Not Recovered/Not Resolved]
  - Blood creatine phosphokinase increased [Not Recovered/Not Resolved]
